FAERS Safety Report 18027807 (Version 1)
Quarter: 2020Q3

REPORT INFORMATION
  Report Type: Spontaneous
  Country: GB (occurrence: GB)
  Receive Date: 20200715
  Receipt Date: 20200715
  Transmission Date: 20201103
  Serious: Yes (Other)
  Sender: FDA-Public Use
  Company Number: GB-JNJFOC-20200710400

PATIENT
  Sex: Female

DRUGS (1)
  1. SIMPONI [Suspect]
     Active Substance: GOLIMUMAB
     Indication: RHEUMATOID ARTHRITIS
     Dosage: 50MG/0.5ML
     Route: 058

REACTIONS (3)
  - Type 1 diabetes mellitus [Unknown]
  - Impaired healing [Recovered/Resolved]
  - Localised infection [Recovered/Resolved]
